FAERS Safety Report 11506608 (Version 3)
Quarter: 2018Q2

REPORT INFORMATION
  Report Type: Spontaneous
  Country: US (occurrence: US)
  Receive Date: 20150915
  Receipt Date: 20180629
  Transmission Date: 20180711
  Serious: No
  Sender: FDA-Public Use
  Company Number: US-PFIZER INC-2015233683

PATIENT
  Sex: Female

DRUGS (1)
  1. LYRICA [Suspect]
     Active Substance: PREGABALIN
     Dosage: 75 MG, DAILY (THREE 25MG PILLS A DAY)

REACTIONS (5)
  - Back disorder [Unknown]
  - Limb discomfort [Unknown]
  - Drug dispensing error [Unknown]
  - Pain [Unknown]
  - Intervertebral disc protrusion [Unknown]
